FAERS Safety Report 20514765 (Version 1)
Quarter: 2022Q1

REPORT INFORMATION
  Report Type: Spontaneous
  Country: US (occurrence: None)
  Receive Date: 20220224
  Receipt Date: 20220224
  Transmission Date: 20220423
  Serious: Yes (Life-Threatening)
  Sender: FDA-Public Use
  Company Number: None

PATIENT
  Age: 31 Year
  Sex: Male

DRUGS (1)
  1. STELARA [Suspect]
     Active Substance: USTEKINUMAB
     Dates: start: 20220218, end: 20220218

REACTIONS (5)
  - Hypersensitivity [None]
  - Chest discomfort [None]
  - Flushing [None]
  - Throat tightness [None]
  - Chills [None]

NARRATIVE: CASE EVENT DATE: 20220218
